FAERS Safety Report 9470784 (Version 1)
Quarter: 2013Q3

REPORT INFORMATION
  Report Type: Spontaneous
  Country: US (occurrence: None)
  Receive Date: 20130820
  Receipt Date: 20130820
  Transmission Date: 20140515
  Serious: No
  Sender: FDA-Public Use
  Company Number: None

PATIENT
  Age: 74 Year
  Sex: Female
  Weight: 75.75 kg

DRUGS (18)
  1. PROLIA [Suspect]
     Indication: OSTEOGENESIS IMPERFECTA
     Dates: start: 20120909, end: 201309
  2. CENTRUM SILVER 50 + FOR WOMEN [Concomitant]
  3. MOBIC [Concomitant]
  4. CARVEDILOL [Concomitant]
  5. DIOVAN [Concomitant]
  6. ASPIRIN [Concomitant]
  7. NITROQUICK [Concomitant]
  8. ZOLOFT [Concomitant]
  9. NEURONTIN [Concomitant]
  10. SYNTHROID [Concomitant]
  11. CITRACAL [Concomitant]
  12. PERCOCET [Concomitant]
  13. PRILOSEC [Concomitant]
  14. WELCHOL [Concomitant]
  15. PROLIA [Concomitant]
  16. LOVAZA [Concomitant]
  17. VITAMIN D 50000 IU [Concomitant]
  18. VITAMIN D3 2000 [Concomitant]

REACTIONS (5)
  - Stress fracture [None]
  - Femur fracture [None]
  - Infection [None]
  - Pain in extremity [None]
  - Quality of life decreased [None]
